FAERS Safety Report 5443525-2 (Version None)
Quarter: 2007Q3

REPORT INFORMATION
  Report Type: 
  Country: None (occurrence: None)
  Receive Date: 20070730
  Receipt Date: 20070522
  Transmission Date: 20080115
  Serious: Yes (Hospitalization)
  Sender: FDA-Public Use
  Company Number: 238773

PATIENT
  Age: 63 Year
  Sex: Female

DRUGS (5)
  1. RITUXAN [Suspect]
     Indication: RHEUMATOID ARTHRITIS
     Dosage: 1000 MG
     Dates: start: 20070308
  2. PREDNISONE TAB [Concomitant]
  3. SOLU-MEDROL [Concomitant]
  4. BENADRYL [Concomitant]
  5. TYLENOL (CAPLET) [Concomitant]

REACTIONS (1)
  - PYREXIA [None]
